FAERS Safety Report 20497051 (Version 3)
Quarter: 2022Q3

REPORT INFORMATION
  Report Type: Report from Study
  Country: BR (occurrence: BR)
  Receive Date: 20220221
  Receipt Date: 20220909
  Transmission Date: 20221027
  Serious: Yes (Other)
  Sender: FDA-Public Use
  Company Number: BR-BIOGEN-2022BI01097079

PATIENT
  Sex: Female
  Weight: 80 kg

DRUGS (8)
  1. AVONEX PEN [Suspect]
     Active Substance: INTERFERON BETA-1A
     Indication: Multiple sclerosis
     Route: 050
     Dates: start: 2010, end: 202107
  2. AVONEX PEN [Suspect]
     Active Substance: INTERFERON BETA-1A
     Route: 050
     Dates: start: 2002, end: 202201
  3. AVONEX PEN [Suspect]
     Active Substance: INTERFERON BETA-1A
     Route: 050
  4. AVONEX PEN [Suspect]
     Active Substance: INTERFERON BETA-1A
  5. GABAPENTIN [Suspect]
     Active Substance: GABAPENTIN
     Indication: Multiple sclerosis relapse
     Route: 050
     Dates: start: 2017
  6. GABAPENTIN [Suspect]
     Active Substance: GABAPENTIN
     Route: 050
  7. OXCARBAZEPINE [Suspect]
     Active Substance: OXCARBAZEPINE
     Indication: Multiple sclerosis relapse
     Dosage: WHEN THE SHOCK IS DECREASING, USE EVERY 12 HOURS
     Route: 050
     Dates: start: 2017
  8. LEVOTHYROXINE [Concomitant]
     Active Substance: LEVOTHYROXINE
     Indication: Hyperthyroidism
     Route: 050

REACTIONS (6)
  - Diabetes mellitus [Not Recovered/Not Resolved]
  - Hypertension [Not Recovered/Not Resolved]
  - Multiple sclerosis relapse [Recovered/Resolved with Sequelae]
  - Bite [Unknown]
  - Liver disorder [Not Recovered/Not Resolved]
  - Anxiety [Not Recovered/Not Resolved]

NARRATIVE: CASE EVENT DATE: 20170101
